FAERS Safety Report 4768769-4 (Version None)
Quarter: 2005Q3

REPORT INFORMATION
  Report Type: 
  Country: None (occurrence: None)
  Receive Date: 20050913
  Receipt Date: 20050831
  Transmission Date: 20060218
  Serious: Yes (Other)
  Sender: FDA-Public Use
  Company Number: 2005123176

PATIENT
  Age: 83 Year
  Sex: Female
  Weight: 57.1532 kg

DRUGS (7)
  1. LIPITOR [Suspect]
     Indication: BLOOD CHOLESTEROL INCREASED
     Dosage: 5 MG (10 MG, ONE HALF TABLET DAILY), ORAL
     Route: 048
     Dates: start: 20030101
  2. ACCUPRIL [Concomitant]
  3. WARFARIN SODIUM [Concomitant]
  4. RANITIDINE HCL [Concomitant]
  5. ATENOLOL [Concomitant]
  6. MIDRIN (DICHLORALPHENAZONE, ISOMETHEPTENE, PARACETAMOL) [Concomitant]
  7. CALTRATE (CALCIUM CARBONATE) [Concomitant]

REACTIONS (1)
  - TRANSIENT ISCHAEMIC ATTACK [None]
